FAERS Safety Report 5031020-4 (Version None)
Quarter: 2006Q2

REPORT INFORMATION
  Report Type: 
  Country: None (occurrence: None)
  Receive Date: 20060621
  Receipt Date: 20060510
  Transmission Date: 20061013
  Serious: No
  Sender: FDA-Public Use
  Company Number: US-GLAXOSMITHKLINE-A0605049A

PATIENT
  Age: 4 Year
  Sex: Female

DRUGS (2)
  1. FLOVENT [Suspect]
     Indication: ASTHMA
     Dosage: 1PUFF AT NIGHT
     Route: 055
     Dates: end: 20060505
  2. NO CONCURRENT MEDICATION [Concomitant]

REACTIONS (3)
  - COUGH [None]
  - ILL-DEFINED DISORDER [None]
  - RHINORRHOEA [None]
